FAERS Safety Report 11669640 (Version 1)
Quarter: 2015Q4

REPORT INFORMATION
  Report Type: Spontaneous
  Country: US (occurrence: US)
  Receive Date: 20151027
  Receipt Date: 20151027
  Transmission Date: 20160304
  Serious: No
  Sender: FDA-Public Use
  Company Number: US-ELI_LILLY_AND_COMPANY-US201002006969

PATIENT
  Age: 76 Year
  Sex: Male

DRUGS (2)
  1. FORTEO [Suspect]
     Active Substance: TERIPARATIDE
     Dosage: 20 UG, UNK
  2. FORTEO [Suspect]
     Active Substance: TERIPARATIDE
     Indication: OSTEOPOROSIS
     Dosage: 20 UG, UNKNOWN
     Route: 065
     Dates: start: 200911

REACTIONS (4)
  - Rib fracture [Unknown]
  - Back pain [Not Recovered/Not Resolved]
  - Intervertebral disc compression [Unknown]
  - Fall [Unknown]

NARRATIVE: CASE EVENT DATE: 2010
